FAERS Safety Report 24112804 (Version 1)
Quarter: 2024Q3

REPORT INFORMATION
  Report Type: Report from Study
  Country: US (occurrence: US)
  Receive Date: 20240719
  Receipt Date: 20240719
  Transmission Date: 20241016
  Serious: Yes (Hospitalization, Other)
  Sender: PFIZER
  Company Number: US-PFIZER INC-PV202400094216

PATIENT
  Age: 81 Year
  Sex: Male

DRUGS (9)
  1. FLAGYL [Suspect]
     Active Substance: METRONIDAZOLE\METRONIDAZOLE HYDROCHLORIDE
     Dosage: 500 MG, 2X/DAY, FOR 11 DAYS
     Route: 065
     Dates: start: 202403, end: 2024
  2. TREPROSTINIL [Suspect]
     Active Substance: TREPROSTINIL
     Indication: Pulmonary arterial hypertension
     Dosage: UNK
     Route: 055
     Dates: start: 202402
  3. TREPROSTINIL [Suspect]
     Active Substance: TREPROSTINIL
     Dosage: 64 UG, 4X/DAY
     Route: 055
     Dates: start: 2024, end: 202403
  4. TREPROSTINIL [Suspect]
     Active Substance: TREPROSTINIL
     Dosage: UNK UNK, 1X/DAY
     Route: 055
     Dates: start: 202403, end: 202403
  5. TREPROSTINIL [Suspect]
     Active Substance: TREPROSTINIL
     Dosage: 64 UG, 4X/DAY
     Route: 055
     Dates: start: 202403
  6. TYVASO [Suspect]
     Active Substance: TREPROSTINIL
     Indication: Pulmonary arterial hypertension
     Dosage: UNK
     Route: 055
  7. AMOXICILLIN\CLAVULANATE POTASSIUM [Suspect]
     Active Substance: AMOXICILLIN\CLAVULANATE POTASSIUM
     Dosage: UNK UNK, 2X/DAY FOR 10 DAYS
     Route: 065
     Dates: start: 2024, end: 2024
  8. OXYGEN [Suspect]
     Active Substance: OXYGEN
     Dosage: UNK
     Route: 065
  9. CIPRO [Suspect]
     Active Substance: CIPROFLOXACIN HYDROCHLORIDE
     Dosage: 500 UG, 2X/DAY  FOR 11 DAYS
     Route: 065
     Dates: start: 202403, end: 2024

REACTIONS (2)
  - Diverticulitis intestinal perforated [Unknown]
  - Hypotension [Recovering/Resolving]

NARRATIVE: CASE EVENT DATE: 20240301
